FAERS Safety Report 5100840-X (Version None)
Quarter: 2006Q3

REPORT INFORMATION
  Report Type: 
  Country: None (occurrence: None)
  Receive Date: 20060911
  Receipt Date: 20060831
  Transmission Date: 20061208
  Serious: Yes (Hospitalization)
  Sender: FDA-Public Use
  Company Number: US-JNJFOC-20060900288

PATIENT
  Sex: Female
  Weight: 70.76 kg

DRUGS (16)
  1. REMICADE [Suspect]
     Indication: RHEUMATOID ARTHRITIS
     Route: 042
  2. METHOTREXATE [Concomitant]
  3. LOTREL [Concomitant]
     Dosage: DOSE 5/20
  4. FOLIC ACID [Concomitant]
  5. PREVACID [Concomitant]
  6. ASPIRIN [Concomitant]
  7. PRILOSEC [Concomitant]
  8. MIACALCIN [Concomitant]
  9. ZOLOFT [Concomitant]
  10. VITAMIN B6 [Concomitant]
  11. VITAMIN B-12 [Concomitant]
  12. XALATAN [Concomitant]
     Route: 047
  13. ALPHAGAN [Concomitant]
     Route: 047
  14. CALCIUM+D [Concomitant]
  15. GLUCOSAMINE [Concomitant]
  16. METAMUCIL [Concomitant]

REACTIONS (2)
  - BLADDER OPERATION [None]
  - URETERAL STENT INSERTION [None]
